FAERS Safety Report 9269865 (Version 4)
Quarter: 2013Q3

REPORT INFORMATION
  Report Type: Report from Study
  Country: US (occurrence: US)
  Receive Date: 20130503
  Receipt Date: 20130808
  Transmission Date: 20140515
  Serious: Yes (Hospitalization)
  Sender: FDA-Public Use
  Company Number: US-ACTELION-A-NJ2012-60266

PATIENT
  Age: 72 Year
  Sex: Male

DRUGS (3)
  1. TRACLEER [Suspect]
     Indication: PULMONARY ARTERIAL HYPERTENSION
     Dosage: UNK
     Route: 048
  2. COUMADIN [Concomitant]
  3. PLAVIX [Concomitant]

REACTIONS (12)
  - Syncope [Recovering/Resolving]
  - Hand fracture [Recovered/Resolved]
  - Balance disorder [Recovered/Resolved]
  - Fall [Recovering/Resolving]
  - Fracture [Recovering/Resolving]
  - Nasopharyngitis [Unknown]
  - Cold sweat [Unknown]
  - Tremor [Unknown]
  - Feeling hot [Unknown]
  - Oedema [Unknown]
  - Dizziness [Recovered/Resolved]
  - Dyspnoea [Recovered/Resolved]
